FAERS Safety Report 10645554 (Version 1)
Quarter: 2014Q4

REPORT INFORMATION
  Report Type: Spontaneous
  Country: HR (occurrence: None)
  Receive Date: 20141209
  Receipt Date: 20141209
  Transmission Date: 20150529
  Serious: Yes (Death)
  Sender: FDA-Public Use
  Company Number: FK201405720

PATIENT
  Age: 66 Year
  Sex: Male

DRUGS (4)
  1. LINEZOLID (LINEZOLID) (LINEZOLID) [Suspect]
     Active Substance: LINEZOLID
     Indication: ANTIBIOTIC THERAPY
  2. MEROPENEM. [Suspect]
     Active Substance: MEROPENEM
     Indication: ANTIBIOTIC THERAPY
  3. VANCOMYCIN (MANUFACTURER UNKNOWN) (VANCOMYCIN) (VANCOMYCIN) [Suspect]
     Active Substance: VANCOMYCIN
     Indication: ANTIBIOTIC THERAPY
  4. ESOMEPRAZOLE [Suspect]
     Active Substance: ESOMEPRAZOLE
     Indication: PRODUCT USED FOR UNKNOWN INDICATION

REACTIONS (9)
  - Sepsis [None]
  - General physical health deterioration [None]
  - Shock [None]
  - Pneumonia staphylococcal [None]
  - Anuria [None]
  - Toxic epidermal necrolysis [None]
  - Coma [None]
  - Haemodialysis [None]
  - Multi-organ failure [None]
